FAERS Safety Report 7292635-6 (Version None)
Quarter: 2011Q1

REPORT INFORMATION
  Report Type: 
  Country: None (occurrence: None)
  Receive Date: 20110215
  Receipt Date: 20110208
  Transmission Date: 20110831
  Serious: Yes (Hospitalization)
  Sender: FDA-Public Use
  Company Number: FR-SANOFI-AVENTIS-2011SA008126

PATIENT
  Age: 60 Year
  Sex: Male

DRUGS (12)
  1. AVASTIN [Suspect]
     Route: 042
     Dates: start: 20101222, end: 20101222
  2. METHYLPREDNISOLONE [Concomitant]
     Route: 042
     Dates: start: 20101222, end: 20101222
  3. ZOPHREN [Concomitant]
     Route: 065
     Dates: start: 20101222, end: 20101222
  4. AVASTIN [Suspect]
     Route: 042
     Dates: start: 20110105, end: 20110105
  5. FLUOROURACIL [Suspect]
     Route: 042
     Dates: start: 20101222, end: 20101222
  6. ELOXATIN [Suspect]
     Route: 042
     Dates: start: 20101222, end: 20101222
  7. METHYLPREDNISOLONE [Concomitant]
     Indication: PREMEDICATION
     Route: 042
     Dates: start: 20110105, end: 20110105
  8. CALCIUM FOLINATE [Concomitant]
     Indication: PREMEDICATION
     Route: 042
     Dates: start: 20110105, end: 20110105
  9. CALCIUM FOLINATE [Concomitant]
     Route: 042
     Dates: start: 20101222, end: 20101222
  10. ELOXATIN [Suspect]
     Route: 042
     Dates: start: 20110105, end: 20110105
  11. FLUOROURACIL [Suspect]
     Route: 042
     Dates: start: 20110105, end: 20110105
  12. ZOPHREN [Concomitant]
     Route: 065
     Dates: start: 20110105, end: 20110105

REACTIONS (4)
  - THROMBOCYTOPENIA [None]
  - PYREXIA [None]
  - HAPTOGLOBIN DECREASED [None]
  - CHILLS [None]
